FAERS Safety Report 6259787-8 (Version None)
Quarter: 2009Q3

REPORT INFORMATION
  Report Type: 
  Country: None (occurrence: None)
  Receive Date: 20090708
  Receipt Date: 20090630
  Transmission Date: 20100115
  Serious: Yes (Other)
  Sender: FDA-Public Use
  Company Number: US-AMGEN-QUU353886

PATIENT
  Sex: Male

DRUGS (2)
  1. ENBREL [Suspect]
     Indication: JUVENILE ARTHRITIS
     Route: 058
  2. NAPROXEN [Concomitant]

REACTIONS (6)
  - ARTHRITIS [None]
  - GINGIVAL BLISTER [None]
  - HYPERSENSITIVITY [None]
  - INJECTION SITE IRRITATION [None]
  - LOCALISED OEDEMA [None]
  - URTICARIA [None]
